FAERS Safety Report 5995863-2 (Version None)
Quarter: 2008Q4

REPORT INFORMATION
  Report Type: 
  Country: None (occurrence: None)
  Receive Date: 20081212
  Receipt Date: 20081204
  Transmission Date: 20090506
  Serious: Yes (Death, Hospitalization, Other)
  Sender: FDA-Public Use
  Company Number: US-ROXANE LABORATORIES, INC.-2008-RO-00348RO

PATIENT
  Age: 54 Year
  Sex: Female
  Weight: 113 kg

DRUGS (23)
  1. CYCLOPHOSPHAMIDE [Suspect]
     Indication: WEGENER'S GRANULOMATOSIS
     Dosage: 100MG
     Route: 048
  2. CYCLOPHOSPHAMIDE [Suspect]
     Dosage: 250MG
     Route: 048
  3. CYCLOPHOSPHAMIDE [Suspect]
     Dosage: 350MG
     Route: 048
  4. CYCLOPHOSPHAMIDE [Suspect]
     Dosage: 200MG
     Route: 048
  5. CYCLOPHOSPHAMIDE [Suspect]
     Dosage: 150MG
     Route: 048
  6. CYCLOPHOSPHAMIDE [Suspect]
     Dosage: 125MG
     Route: 048
  7. CYCLOPHOSPHAMIDE [Suspect]
     Dosage: 75MG
     Route: 048
  8. PREDNISONE TAB [Suspect]
     Indication: WEGENER'S GRANULOMATOSIS
     Dosage: 40MG
  9. PREDNISONE TAB [Suspect]
     Dosage: 20MG
  10. PREDNISONE TAB [Suspect]
     Dosage: 150MG
  11. PREDNISONE TAB [Suspect]
     Dosage: 5MG
  12. PREDNISONE TAB [Suspect]
     Dosage: 30MG
  13. METHOTREXATE [Suspect]
     Indication: WEGENER'S GRANULOMATOSIS
     Route: 048
  14. MYCOPHENOLATE MOFETIL [Suspect]
     Indication: WEGENER'S GRANULOMATOSIS
     Dosage: 500MG
  15. POLYGAM S/D [Suspect]
     Indication: GLOMERULONEPHRITIS RAPIDLY PROGRESSIVE
     Route: 042
  16. ATGAM [Suspect]
  17. BLOOD TRANSFUSIONS [Concomitant]
     Indication: GLOMERULONEPHRITIS RAPIDLY PROGRESSIVE
  18. PLATELET TRANSFUSIONS [Concomitant]
     Indication: PLATELET COUNT DECREASED
  19. PLATELET TRANSFUSIONS [Concomitant]
     Indication: URINARY BLADDER HAEMORRHAGE
  20. FRESH FROZEN PLASMA [Concomitant]
     Indication: APHERESIS
  21. FRESH FROZEN PLASMA [Concomitant]
     Indication: URINARY BLADDER HAEMORRHAGE
  22. SODIUM CHLORIDE [Concomitant]
     Indication: URINARY BLADDER HAEMORRHAGE
  23. ERYTHROPOIETIN THERAPY [Concomitant]
     Indication: HAEMOGLOBIN DECREASED

REACTIONS (5)
  - ACUTE MYELOID LEUKAEMIA [None]
  - CYSTITIS HAEMORRHAGIC [None]
  - DIARRHOEA [None]
  - DRUG INEFFECTIVE [None]
  - GLOMERULONEPHRITIS RAPIDLY PROGRESSIVE [None]
